FAERS Safety Report 21959099 (Version 1)
Quarter: 2023Q1

REPORT INFORMATION
  Report Type: Spontaneous
  Country: CA (occurrence: CA)
  Receive Date: 20230206
  Receipt Date: 20230206
  Transmission Date: 20230417
  Serious: Yes (Other)
  Sender: FDA-Public Use
  Company Number: CA-JNJFOC-20230205201

PATIENT
  Age: 79 Year
  Sex: Female

DRUGS (11)
  1. REMICADE [Suspect]
     Active Substance: INFLIXIMAB
     Indication: Psoriatic arthropathy
     Route: 041
  2. INFLIXIMAB [Suspect]
     Active Substance: INFLIXIMAB
     Indication: Psoriatic arthropathy
     Route: 041
  3. INFLIXIMAB [Suspect]
     Active Substance: INFLIXIMAB
     Route: 041
  4. COZAAR [Concomitant]
     Active Substance: LOSARTAN POTASSIUM
  5. FAMOTIDINE [Concomitant]
     Active Substance: FAMOTIDINE
  6. LEUCOVORIN [Concomitant]
     Active Substance: LEUCOVORIN
     Route: 048
  7. METHOTREXATE [Concomitant]
     Active Substance: METHOTREXATE
     Indication: Psoriatic arthropathy
  8. PREDNISONE [Concomitant]
     Active Substance: PREDNISONE
  9. PREVACID [Concomitant]
     Active Substance: LANSOPRAZOLE
  10. ROSUVASTATIN CALCIUM [Concomitant]
     Active Substance: ROSUVASTATIN CALCIUM
  11. TRICHLORMETHIAZIDE [Concomitant]
     Active Substance: TRICHLORMETHIAZIDE

REACTIONS (2)
  - Hand fracture [Not Recovered/Not Resolved]
  - Off label use [Not Recovered/Not Resolved]
